FAERS Safety Report 10238670 (Version 2)
Quarter: 2014Q2

REPORT INFORMATION
  Report Type: Spontaneous
  Country: US (occurrence: US)
  Receive Date: 20140616
  Receipt Date: 20140616
  Transmission Date: 20141212
  Serious: Yes (Death)
  Sender: FDA-Public Use
  Company Number: US-ENDO PHARMACEUTICALS INC.-OPCR20140088

PATIENT
  Age: 28 Year
  Sex: Male

DRUGS (2)
  1. OPANA ER 40MG [Suspect]
     Indication: PRODUCT USED FOR UNKNOWN INDICATION
     Dosage: UNKNOWN
     Route: 065
  2. OPANA ER 40MG [Suspect]
     Dosage: UNKNOWN
     Route: 065

REACTIONS (1)
  - Intentional overdose [Fatal]
